FAERS Safety Report 18538525 (Version 2)
Quarter: 2020Q4

REPORT INFORMATION
  Report Type: Spontaneous
  Country: IL (occurrence: IL)
  Receive Date: 20201123
  Receipt Date: 20201214
  Transmission Date: 20210114
  Serious: Yes (Death, Other)
  Sender: FDA-Public Use
  Company Number: IL-ABBVIE-20K-082-3662867-00

PATIENT
  Age: 74 Year
  Sex: Male
  Weight: 58 kg

DRUGS (6)
  1. ZEFFIX [Concomitant]
     Active Substance: LAMIVUDINE
     Indication: PROPHYLAXIS
     Route: 048
     Dates: start: 20180308, end: 20201112
  2. ACYCLOVIR. [Concomitant]
     Active Substance: ACYCLOVIR
     Indication: PROPHYLAXIS
     Route: 048
     Dates: start: 20180308, end: 20201112
  3. OXYCOD [Concomitant]
     Indication: PAIN
     Route: 048
     Dates: start: 20201004, end: 20201112
  4. PRAMIN [Concomitant]
     Indication: VOMITING
     Route: 048
     Dates: start: 20201004, end: 20201112
  5. VENCLEXTA [Suspect]
     Active Substance: VENETOCLAX
     Indication: PLASMA CELL MYELOMA
  6. VENCLEXTA [Suspect]
     Active Substance: VENETOCLAX
     Indication: MALIGNANT MELANOMA
     Dosage: ABOUT A MONTH
     Route: 048
     Dates: start: 20201001, end: 20201112

REACTIONS (2)
  - Light chain analysis decreased [Unknown]
  - Death [Fatal]

NARRATIVE: CASE EVENT DATE: 20201109
